FAERS Safety Report 6221710-X (Version None)
Quarter: 2009Q2

REPORT INFORMATION
  Report Type: 
  Country: None (occurrence: None)
  Receive Date: 20090608
  Receipt Date: 20090603
  Transmission Date: 20091009
  Serious: Yes (Other)
  Sender: FDA-Public Use
  Company Number: CERZ-1000657

PATIENT
  Age: 66 Year
  Sex: Female
  Weight: 101.4 kg

DRUGS (8)
  1. CEREZYME [Suspect]
     Indication: GAUCHER'S DISEASE
     Dosage: 3200 U, Q2W, INTRAVENOUS; 2800 U, Q2W, INTRAVENOUS
     Route: 042
     Dates: start: 19940201, end: 20090101
  2. CEREZYME [Suspect]
     Indication: GAUCHER'S DISEASE
     Dosage: 3200 U, Q2W, INTRAVENOUS; 2800 U, Q2W, INTRAVENOUS
     Route: 042
     Dates: start: 20090101
  3. AZILECT (RASAGILINE MESYLATE) [Concomitant]
  4. DEPAKOTE [Concomitant]
  5. CARBIDOPA AND LEVODOPA [Concomitant]
  6. ROPINIROLE [Concomitant]
  7. ALLOPURINOL [Concomitant]
  8. BONIVA [Concomitant]

REACTIONS (17)
  - ANXIETY [None]
  - CONTUSION [None]
  - COUGH [None]
  - CYSTITIS NONINFECTIVE [None]
  - FAECAL VOLUME INCREASED [None]
  - FALL [None]
  - FATIGUE [None]
  - HERPES ZOSTER [None]
  - HYPOACUSIS [None]
  - MACULAR DEGENERATION [None]
  - NASAL CONGESTION [None]
  - NERVOUS SYSTEM DISORDER [None]
  - PARKINSON'S DISEASE [None]
  - RASH [None]
  - TOOTH FRACTURE [None]
  - TRANSIENT ISCHAEMIC ATTACK [None]
  - WEIGHT INCREASED [None]
